FAERS Safety Report 18145314 (Version 1)
Quarter: 2020Q3

REPORT INFORMATION
  Report Type: Spontaneous
  Country: US (occurrence: US)
  Receive Date: 20200813
  Receipt Date: 20200813
  Transmission Date: 20201103
  Serious: No
  Sender: FDA-Public Use
  Company Number: None

PATIENT
  Sex: Male

DRUGS (2)
  1. FISH OIL [Suspect]
     Active Substance: FISH OIL
  2. NIACIN. [Suspect]
     Active Substance: NIACIN

REACTIONS (1)
  - Therapy non-responder [None]
